FAERS Safety Report 21161306 (Version 1)
Quarter: 2022Q3

REPORT INFORMATION
  Report Type: Spontaneous
  Country: US (occurrence: None)
  Receive Date: 20220801
  Receipt Date: 20220801
  Transmission Date: 20221027
  Serious: No
  Sender: FDA-Public Use
  Company Number: None

PATIENT
  Age: 6 Year
  Sex: Male
  Weight: 20.25 kg

DRUGS (7)
  1. MONTELUKAST SODIUM [Suspect]
     Active Substance: MONTELUKAST SODIUM
     Indication: Multiple allergies
     Dosage: OTHER QUANTITY : 1 TABLET(S);?FREQUENCY : AT BEDTIME;?
     Route: 048
  2. MONTELUKAST SODIUM [Suspect]
     Active Substance: MONTELUKAST SODIUM
     Indication: Eczema
  3. UNSPECIFIED INGREDIENT [Concomitant]
     Active Substance: UNSPECIFIED INGREDIENT
  4. Azelastine eye drops [Concomitant]
  5. nasal spray (replaced Monteluk [Concomitant]
  6. takes vitamin D drops [Concomitant]
  7. Xyzal before allergy shots [Concomitant]

REACTIONS (7)
  - Emotional disorder [None]
  - Abnormal behaviour [None]
  - Withdrawal syndrome [None]
  - Mood swings [None]
  - Anger [None]
  - Impatience [None]
  - Aggression [None]

NARRATIVE: CASE EVENT DATE: 20220506
